FAERS Safety Report 8487487-2 (Version None)
Quarter: 2012Q2

REPORT INFORMATION
  Report Type: 
  Country: None (occurrence: None)
  Receive Date: 20120627
  Receipt Date: 20120615
  Transmission Date: 20120825
  Serious: Yes (Hospitalization)
  Sender: FDA-Public Use
  Company Number: 12-477

PATIENT

DRUGS (2)
  1. DICLOFENAC SODIUM [Suspect]
     Indication: JOINT STIFFNESS
     Dosage: 50 MG, DAILY, ORAL
     Route: 048
     Dates: start: 20120401, end: 20120604
  2. IBUPROFEN [Suspect]
     Indication: JOINT STIFFNESS
     Dosage: 400 MG, UNK, ORAL
     Route: 048
     Dates: start: 20120501, end: 20120605

REACTIONS (5)
  - ULCER [None]
  - MALAISE [None]
  - GASTROINTESTINAL HAEMORRHAGE [None]
  - HAEMOGLOBIN DECREASED [None]
  - FATIGUE [None]
